FAERS Safety Report 7871463-4 (Version None)
Quarter: 2011Q4

REPORT INFORMATION
  Report Type: 
  Country: None (occurrence: None)
  Receive Date: 20111029
  Receipt Date: 20110302
  Transmission Date: 20120403
  Serious: No
  Sender: FDA-Public Use
  Company Number: US-AMGEN-USASP2011011819

PATIENT
  Sex: Male

DRUGS (4)
  1. REMICADE [Concomitant]
  2. SULFASALAZINE [Concomitant]
     Dosage: 2000 MG, QD
     Route: 048
     Dates: start: 20100208
  3. ENBREL [Suspect]
     Indication: PSORIATIC ARTHROPATHY
     Dosage: 50 MG, QWK
     Route: 058
     Dates: start: 20040318, end: 20100501
  4. ENBREL [Suspect]
     Indication: PSORIASIS
     Dates: start: 20071231

REACTIONS (5)
  - FATIGUE [None]
  - COUGH [None]
  - DYSPNOEA [None]
  - PSORIATIC ARTHROPATHY [None]
  - PSORIASIS [None]
